FAERS Safety Report 6696316-9 (Version None)
Quarter: 2010Q2

REPORT INFORMATION
  Report Type: 
  Country: None (occurrence: None)
  Receive Date: 20100419
  Receipt Date: 20090626
  Transmission Date: 20101027
  Serious: No
  Sender: FDA-Public Use
  Company Number: 2009-00411

PATIENT
  Age: 49 Year
  Sex: Female
  Weight: 81.6475 kg

DRUGS (5)
  1. ZICAM COLD REMEDY GEL SWABS [Suspect]
     Dosage: AS DIRECTED - ABOUT A WK, FALL 2007 - FALL 2007
     Dates: start: 20070101, end: 20070101
  2. TEGRETOL-XR [Concomitant]
  3. LIALDA [Concomitant]
  4. BENADRYL [Concomitant]
  5. MULTI-VITAMIN [Concomitant]

REACTIONS (1)
  - ANOSMIA [None]
